FAERS Safety Report 4318476-7 (Version None)
Quarter: 2004Q1

REPORT INFORMATION
  Report Type: 
  Country: None (occurrence: None)
  Receive Date: 20040316
  Receipt Date: 20040316
  Transmission Date: 20041129
  Serious: Yes (Death)
  Sender: FDA-Public Use
  Company Number: None

PATIENT
  Age: 72 Year
  Sex: Male
  Weight: 90 kg

DRUGS (5)
  1. CYCLOSPORINE [Suspect]
     Indication: ACUTE MYELOID LEUKAEMIA
     Dosage: 1430 MG
     Dates: start: 20040130, end: 20040202
  2. CYCLOSPORINE [Suspect]
     Indication: ACUTE MYELOID LEUKAEMIA
     Dosage: 1430 MG
     Dates: start: 20040216, end: 20040219
  3. ARA-C [Suspect]
     Indication: ACUTE MYELOID LEUKAEMIA
     Dosage: 415 MG X 7 D CIV
     Dates: start: 20040130, end: 20040206
  4. ARA-C [Suspect]
     Indication: ACUTE MYELOID LEUKAEMIA
     Dosage: 415 MG X 7 D CIV
     Dates: start: 20040216, end: 20040223
  5. DAUNORUBACIN [Suspect]
     Dosage: 94 MG X 3D

REACTIONS (14)
  - ABDOMINAL DISTENSION [None]
  - DIARRHOEA HAEMORRHAGIC [None]
  - DIVERTICULITIS [None]
  - DYSPNOEA AT REST [None]
  - DYSPNOEA EXERTIONAL [None]
  - FLUID OVERLOAD [None]
  - GENERALISED OEDEMA [None]
  - HAEMATOCHEZIA [None]
  - HEPATIC FUNCTION ABNORMAL [None]
  - HYPOTENSION [None]
  - HYPOXIA [None]
  - OXYGEN SATURATION DECREASED [None]
  - PYREXIA [None]
  - RENAL IMPAIRMENT [None]
